FAERS Safety Report 9294178 (Version 1)
Quarter: 2013Q2

REPORT INFORMATION
  Report Type: Spontaneous
  Country: US (occurrence: US)
  Receive Date: 20130517
  Receipt Date: 20130517
  Transmission Date: 20140414
  Serious: No
  Sender: FDA-Public Use
  Company Number: US-B.I. PHARMACEUTICALS,INC./RIDGEFIELD-2013-BI-13586BP

PATIENT
  Sex: Male

DRUGS (3)
  1. MELOXICAM [Suspect]
  2. TRAZODONE [Concomitant]
  3. METFORMIN [Concomitant]

REACTIONS (1)
  - Anxiety [Unknown]
